FAERS Safety Report 6582938-2 (Version None)
Quarter: 2010Q1

REPORT INFORMATION
  Report Type: 
  Country: None (occurrence: None)
  Receive Date: 20100216
  Receipt Date: 20100209
  Transmission Date: 20100710
  Serious: Yes (Hospitalization)
  Sender: FDA-Public Use
  Company Number: US-AMGEN-QUU376013

PATIENT
  Sex: Male

DRUGS (1)
  1. NEULASTA [Suspect]
     Dates: end: 20070501

REACTIONS (2)
  - JAUNDICE NEONATAL [None]
  - PREMATURE BABY [None]
